FAERS Safety Report 17448210 (Version 1)
Quarter: 2020Q1

REPORT INFORMATION
  Report Type: Spontaneous
  Country: US (occurrence: US)
  Receive Date: 20200222
  Receipt Date: 20200222
  Transmission Date: 20200409
  Serious: Yes (Hospitalization)
  Sender: FDA-Public Use
  Company Number: NVSC2020US047218

PATIENT
  Sex: Female

DRUGS (1)
  1. JADENU [Suspect]
     Active Substance: DEFERASIROX
     Indication: IRON METABOLISM DISORDER
     Dosage: 180 MG (TAKE ONE PACKET BY MOUTH DAILY)
     Route: 048
     Dates: start: 201910

REACTIONS (2)
  - Pneumonia [Unknown]
  - Influenza [Unknown]
